FAERS Safety Report 8365042-2 (Version None)
Quarter: 2012Q2

REPORT INFORMATION
  Report Type: 
  Country: None (occurrence: None)
  Receive Date: 20120516
  Receipt Date: 20120511
  Transmission Date: 20120825
  Serious: Yes (Hospitalization)
  Sender: FDA-Public Use
  Company Number: JP-GLAXOSMITHKLINE-B0801470A

PATIENT
  Age: 5 Decade
  Sex: Female

DRUGS (3)
  1. PAXIL [Suspect]
     Indication: DEPRESSION
     Dosage: 10MG PER DAY
     Route: 065
     Dates: start: 20080101, end: 20120301
  2. PAXIL [Suspect]
     Dosage: 60MG PER DAY
     Route: 065
     Dates: start: 20120301, end: 20120301
  3. PAXIL [Suspect]
     Dosage: 10MG PER DAY
     Route: 065
     Dates: start: 20120301, end: 20120401

REACTIONS (2)
  - OVERDOSE [None]
  - MANIA [None]
